FAERS Safety Report 15326016 (Version 2)
Quarter: 2018Q4

REPORT INFORMATION
  Report Type: Spontaneous
  Country: JP (occurrence: JP)
  Receive Date: 20180828
  Receipt Date: 20181029
  Transmission Date: 20190204
  Serious: Yes (Hospitalization)
  Sender: FDA-Public Use
  Company Number: JP-TERSERA THERAPEUTICS LLC-TSR2018001992

PATIENT

DRUGS (3)
  1. CASODEX [Concomitant]
     Active Substance: BICALUTAMIDE
     Indication: PROSTATE CANCER
     Dosage: 80 MILLIGRAM, UNK
     Route: 048
     Dates: start: 20180822, end: 20181001
  2. ZOLADEX [Suspect]
     Active Substance: GOSERELIN ACETATE
     Indication: PROSTATE CANCER
     Dosage: 10.8 MILLIGRAM, ONCE EVERY 12 WEEKS
     Route: 058
  3. ESTRACYT                           /00327003/ [Concomitant]
     Active Substance: ESTRAMUSTINE PHOSPHATE
     Indication: MALAISE
     Dosage: 156.7 MILLIGRAM, UNK
     Route: 048
     Dates: start: 20180228, end: 20180718

REACTIONS (3)
  - Interstitial lung disease [Recovering/Resolving]
  - Venous thrombosis limb [Unknown]
  - Pulmonary embolism [Unknown]

NARRATIVE: CASE EVENT DATE: 20180817
